FAERS Safety Report 19313866 (Version 1)
Quarter: 2021Q2

REPORT INFORMATION
  Report Type: Spontaneous
  Country: CA (occurrence: CA)
  Receive Date: 20210527
  Receipt Date: 20210527
  Transmission Date: 20210717
  Serious: Yes (Life-Threatening, Hospitalization, Other)
  Sender: FDA-Public Use
  Company Number: CA-ADVANZ PHARMA-202105003857

PATIENT

DRUGS (2)
  1. COMBIGAN [Suspect]
     Active Substance: BRIMONIDINE TARTRATE\TIMOLOL MALEATE
     Indication: CATARACT OPERATION
     Dosage: 1 DOSAGE FORM (SOLUTION)
     Route: 047
  2. PILOCARPINE. [Suspect]
     Active Substance: PILOCARPINE
     Indication: CATARACT
     Dosage: 1 DOSAGE FORM
     Route: 047

REACTIONS (3)
  - Respiratory distress [Recovered/Resolved]
  - Bronchospasm [Recovered/Resolved]
  - Altered state of consciousness [Recovered/Resolved]
